FAERS Safety Report 8854321 (Version 1)
Quarter: 2012Q4

REPORT INFORMATION
  Report Type: Spontaneous
  Country: US (occurrence: None)
  Receive Date: 20121019
  Receipt Date: 20121019
  Transmission Date: 20130627
  Serious: Yes (Disabling)
  Sender: FDA-Public Use
  Company Number: AUR-APL-2012-04421

PATIENT
  Age: 69 Year
  Sex: Female
  Weight: 65.32 kg

DRUGS (4)
  1. ALENDRONATE SODIUM [Suspect]
     Indication: OSTEOPOROSIS
     Route: 048
     Dates: start: 20121005
  2. SIMVASTATIN (SIMVASTATIN) [Concomitant]
  3. PRILOSEC (OMEPRAZOLE) [Concomitant]
  4. HYDROXYCHLOROQUINE (HYDROXYCHLOROQUINE) [Concomitant]

REACTIONS (2)
  - Back pain [None]
  - Influenza like illness [None]
